FAERS Safety Report 6737990-8 (Version None)
Quarter: 2010Q2

REPORT INFORMATION
  Report Type: 
  Country: None (occurrence: None)
  Receive Date: 20100524
  Receipt Date: 20100519
  Transmission Date: 20101027
  Serious: Yes (Life-Threatening, Disabling, Other)
  Sender: FDA-Public Use
  Company Number: US-RB-009044-08

PATIENT
  Age: 30 Month
  Sex: Male

DRUGS (1)
  1. SUBOXONE [Suspect]
     Indication: ACCIDENTAL EXPOSURE
     Dosage: 1 TABLET OF UNKNOWN STRENGTH FOUND IN MOUTH (UNKNOWN IF ROUTE WAS SUBLINGUAL OR BUCCAL)
     Route: 065
     Dates: start: 20070101, end: 20070101

REACTIONS (6)
  - ACCIDENTAL EXPOSURE [None]
  - APNOEA [None]
  - BLINDNESS CORTICAL [None]
  - CYANOSIS [None]
  - DRUG TOXICITY [None]
  - SCROTAL PAIN [None]
